FAERS Safety Report 8597599-0 (Version None)
Quarter: 2012Q3

REPORT INFORMATION
  Report Type: 
  Country: None (occurrence: None)
  Receive Date: 20120816
  Receipt Date: 20120808
  Transmission Date: 20120928
  Serious: Yes (Hospitalization)
  Sender: FDA-Public Use
  Company Number: US-BAYER-2012-081444

PATIENT
  Age: 29 Year
  Sex: Female
  Weight: 86.168 kg

DRUGS (2)
  1. YASMIN [Suspect]
  2. ALLEGRA [Concomitant]
     Dosage: ONCE A DAY,AS NEEDED
     Dates: start: 20070307

REACTIONS (1)
  - DEEP VEIN THROMBOSIS [None]
